FAERS Safety Report 7491066-3 (Version None)
Quarter: 2011Q2

REPORT INFORMATION
  Report Type: 
  Country: None (occurrence: None)
  Receive Date: 20110519
  Receipt Date: 20101230
  Transmission Date: 20111010
  Serious: Yes (Other)
  Sender: FDA-Public Use
  Company Number: JP-ROCHE-742045

PATIENT
  Age: 14 Year
  Sex: Female
  Weight: 49 kg

DRUGS (3)
  1. METHYLPREDNISOLONE [Concomitant]
     Dosage: DOSE FORM: PERORAL AGENT, DOSAGE IS UNCERTAIN.
     Route: 048
  2. BASILIXIMAB [Concomitant]
     Dosage: DOSAGE IS UNCERTAIN.
     Route: 041
  3. CELLCEPT [Suspect]
     Indication: PROPHYLAXIS AGAINST TRANSPLANT REJECTION
     Dosage: DOSAGE IS UNCERTAIN.
     Route: 048

REACTIONS (1)
  - KABUKI MAKE-UP SYNDROME [None]
